FAERS Safety Report 4643042-3 (Version None)
Quarter: 2005Q2

REPORT INFORMATION
  Report Type: 
  Country: None (occurrence: None)
  Receive Date: 20050421
  Receipt Date: 20050222
  Transmission Date: 20051028
  Serious: Yes (Hospitalization, Disabling)
  Sender: FDA-Public Use
  Company Number: 2005022832

PATIENT
  Age: 55 Year
  Sex: Male
  Weight: 70 kg

DRUGS (3)
  1. ALDACTONE [Suspect]
     Indication: HYPERTENSION
     Dosage: 25 MG (12.5 MG, DAILY), ORAL
     Route: 048
     Dates: start: 20041102, end: 20041117
  2. PERINDOPRIL (PERINDOPRIL) [Concomitant]
  3. INDAPAMIDE [Concomitant]

REACTIONS (5)
  - AORTIC VALVE INCOMPETENCE [None]
  - ARTERIOSCLEROSIS [None]
  - CEREBRAL INFARCTION [None]
  - HEART RATE INCREASED [None]
  - HYPERTENSION [None]
